FAERS Safety Report 5195408-3 (Version None)
Quarter: 2006Q4

REPORT INFORMATION
  Report Type: 
  Country: None (occurrence: None)
  Receive Date: 20061229
  Receipt Date: 20061222
  Transmission Date: 20070319
  Serious: Yes (Other)
  Sender: FDA-Public Use
  Company Number: US-PFIZER INC-2006155842

PATIENT
  Sex: Female
  Weight: 90.7 kg

DRUGS (13)
  1. CHANTIX [Suspect]
     Indication: SMOKING CESSATION THERAPY
     Dates: start: 20060101, end: 20061201
  2. POTASSIUM ACETATE [Concomitant]
     Indication: CARDIAC DISORDER
  3. LASIX [Concomitant]
  4. ALBUTEROL [Concomitant]
     Indication: ASTHMA
     Route: 055
  5. CIMETIDINE [Concomitant]
  6. XANAX [Concomitant]
     Indication: STRESS
  7. TOPROL-XL [Concomitant]
  8. GLYBURIDE [Concomitant]
     Indication: DIABETES MELLITUS
  9. VIVELLE [Concomitant]
     Indication: HORMONE REPLACEMENT THERAPY
  10. PERCOCET [Concomitant]
  11. OXYCODONE HCL [Concomitant]
  12. XANAX [Concomitant]
  13. IMDUR [Concomitant]

REACTIONS (4)
  - DECREASED APPETITE [None]
  - HEADACHE [None]
  - NAUSEA [None]
  - VENOUS OCCLUSION [None]
